FAERS Safety Report 9295272 (Version 2)
Quarter: 2013Q3

REPORT INFORMATION
  Report Type: Spontaneous
  Country: US (occurrence: US)
  Receive Date: 20130517
  Receipt Date: 20130722
  Transmission Date: 20140515
  Serious: Yes (Life-Threatening, Hospitalization, Disabling)
  Sender: FDA-Public Use
  Company Number: US-JNJFOC-20130503214

PATIENT
  Sex: Male
  Weight: 68.04 kg

DRUGS (6)
  1. INVEGA SUSTENNA [Suspect]
     Indication: MANIA
     Route: 030
     Dates: start: 201302
  2. INVEGA SUSTENNA [Suspect]
     Indication: SCHIZOPHRENIA, PARANOID TYPE
     Route: 030
     Dates: start: 201302
  3. HALDOL [Suspect]
     Indication: MANIA
     Route: 048
     Dates: start: 201302
  4. HALDOL [Suspect]
     Indication: SCHIZOPHRENIA, PARANOID TYPE
     Route: 048
     Dates: start: 201302
  5. DEPAKOTE [Suspect]
     Indication: MANIA
     Route: 065
     Dates: start: 20130429
  6. DEPAKOTE [Suspect]
     Indication: SCHIZOPHRENIA, PARANOID TYPE
     Route: 065
     Dates: start: 20130429

REACTIONS (3)
  - Schizophrenia [Not Recovered/Not Resolved]
  - Mania [Not Recovered/Not Resolved]
  - Aggression [Unknown]
